FAERS Safety Report 20465652 (Version 1)
Quarter: 2022Q1

REPORT INFORMATION
  Report Type: Spontaneous
  Country: FR (occurrence: FR)
  Receive Date: 20220212
  Receipt Date: 20220212
  Transmission Date: 20220423
  Serious: Yes (Hospitalization, Congenital Anomaly, Other)
  Sender: FDA-Public Use
  Company Number: FR-ABBVIE-22K-056-4269457-00

PATIENT
  Sex: Female

DRUGS (3)
  1. VALPROATE SODIUM [Suspect]
     Active Substance: VALPROATE SODIUM
     Indication: Maternal exposure timing unspecified
     Route: 064
  2. VALPROATE SODIUM [Suspect]
     Active Substance: VALPROATE SODIUM
     Indication: Maternal exposure timing unspecified
     Route: 064
  3. FOLIC ACID [Concomitant]
     Active Substance: FOLIC ACID
     Indication: Product used for unknown indication

REACTIONS (44)
  - Hypotonia [Unknown]
  - Foetal disorder [Unknown]
  - Fatigue [Unknown]
  - Cleft uvula [Unknown]
  - Language disorder [Unknown]
  - Hypertelorism [Unknown]
  - Dysmorphism [Unknown]
  - Lip disorder [Unknown]
  - Prognathism [Unknown]
  - Eating disorder [Unknown]
  - Hypophagia [Unknown]
  - Haemangioma [Unknown]
  - Ear, nose and throat disorder [Unknown]
  - Social problem [Unknown]
  - Ear, nose and throat infection [Unknown]
  - Respiratory tract congestion [Unknown]
  - Hepatic cytolysis [Unknown]
  - Pneumococcal infection [Unknown]
  - Dysphagia [Unknown]
  - Foot deformity [Unknown]
  - Eating disorder [Unknown]
  - Scoliosis [Unknown]
  - Gastrooesophageal reflux disease [Unknown]
  - Tooth malformation [Unknown]
  - Renal malposition [Unknown]
  - Clumsiness [Unknown]
  - Kidney malformation [Unknown]
  - Hypertonia [Unknown]
  - Coordination abnormal [Unknown]
  - Learning disorder [Unknown]
  - Congenital foot malformation [Unknown]
  - Skull malformation [Unknown]
  - Psychomotor retardation [Unknown]
  - Limb malformation [Unknown]
  - Enuresis [Unknown]
  - Cognitive disorder [Unknown]
  - Congenital hand malformation [Unknown]
  - Bronchitis [Unknown]
  - Cough [Unknown]
  - Weight decreased [Unknown]
  - Mental impairment [Unknown]
  - Disturbance in attention [Unknown]
  - Gait disturbance [Unknown]
  - Foetal exposure during pregnancy [Unknown]
